FAERS Safety Report 9429338 (Version 1)
Quarter: 2013Q3

REPORT INFORMATION
  Report Type: Report from Study
  Country: US (occurrence: US)
  Receive Date: 20130730
  Receipt Date: 20130730
  Transmission Date: 20140515
  Serious: No
  Sender: FDA-Public Use
  Company Number: US-ABBOTT-13P-163-1054964-00

PATIENT
  Sex: Female

DRUGS (5)
  1. NIASPAN (COATED) [Suspect]
     Indication: CORONARY ARTERY DISEASE
  2. NIASPAN (COATED) [Suspect]
     Indication: CORONARY ARTERY OCCLUSION
  3. ASA [Concomitant]
     Indication: PRODUCT USED FOR UNKNOWN INDICATION
     Dosage: 30 MIN PRIOR TO NIASPAN OR SOMETIMES WITH NIASPAN
  4. ZETIA [Concomitant]
     Indication: PRODUCT USED FOR UNKNOWN INDICATION
  5. SYNTHROID [Concomitant]
     Indication: PRODUCT USED FOR UNKNOWN INDICATION

REACTIONS (2)
  - Pruritus [Not Recovered/Not Resolved]
  - Nausea [Not Recovered/Not Resolved]
